FAERS Safety Report 15171528 (Version 1)
Quarter: 2018Q3

REPORT INFORMATION
  Report Type: Spontaneous
  Country: US (occurrence: US)
  Receive Date: 20180622
  Receipt Date: 20180622
  Transmission Date: 20181010
  Serious: No
  Sender: FDA-Public Use
  Company Number: None

PATIENT
  Age: 15 Year
  Sex: Male

DRUGS (4)
  1. SMZ?TMP 400?80MG [Concomitant]
  2. TABLOID [Suspect]
     Active Substance: THIOGUANINE
     Indication: BRAIN NEOPLASM MALIGNANT
     Route: 048
     Dates: start: 20171204
  3. SULFAMERAZIN POWDER [Concomitant]
  4. GLEOSTINE [Concomitant]
     Active Substance: LOMUSTINE

REACTIONS (1)
  - Platelet count decreased [None]

NARRATIVE: CASE EVENT DATE: 20180622
